FAERS Safety Report 16349497 (Version 1)
Quarter: 2019Q2

REPORT INFORMATION
  Report Type: Report from Study
  Country: US (occurrence: US)
  Receive Date: 20190523
  Receipt Date: 20190523
  Transmission Date: 20190711
  Serious: Yes (Hospitalization)
  Sender: FDA-Public Use
  Company Number: US-ACTELION-A-US2017-150304

PATIENT
  Sex: Female
  Weight: 101.59 kg

DRUGS (2)
  1. OPSUMIT [Suspect]
     Active Substance: MACITENTAN
     Indication: PULMONARY ARTERIAL HYPERTENSION
     Dosage: 10 MG, QD
     Route: 048
  2. AMLODIPINE [Concomitant]
     Active Substance: AMLODIPINE BESYLATE

REACTIONS (7)
  - Hospitalisation [Unknown]
  - Productive cough [Unknown]
  - Nausea [Unknown]
  - Malaise [Unknown]
  - Product dose omission [Unknown]
  - Pain [Unknown]
  - Decreased appetite [Unknown]
